FAERS Safety Report 4979419-6 (Version None)
Quarter: 2006Q2

REPORT INFORMATION
  Report Type: 
  Country: None (occurrence: None)
  Receive Date: 20060421
  Receipt Date: 20060224
  Transmission Date: 20061013
  Serious: Yes (Hospitalization)
  Sender: FDA-Public Use
  Company Number: US-MERCK-0602USA05690

PATIENT
  Age: 73 Year
  Sex: Male
  Weight: 91 kg

DRUGS (11)
  1. VIOXX [Suspect]
     Indication: BACK PAIN
     Route: 048
  2. NEXIUM [Concomitant]
     Route: 065
  3. ALLEGRA [Concomitant]
     Route: 065
  4. FLONASE [Concomitant]
     Route: 065
  5. BETIMOL [Concomitant]
     Route: 065
  6. XALATAN [Concomitant]
     Route: 065
  7. PRILOSEC [Concomitant]
     Route: 065
  8. HYDROCHLOROTHIAZIDE [Concomitant]
     Route: 065
  9. ASPIRIN [Concomitant]
     Route: 065
  10. AMBIEN [Concomitant]
     Route: 065
  11. COREG [Concomitant]
     Route: 065

REACTIONS (19)
  - APPENDICITIS [None]
  - ARTERIOSCLEROSIS [None]
  - BENIGN PROSTATIC HYPERPLASIA [None]
  - BRADYCARDIA [None]
  - CHEST DISCOMFORT [None]
  - CHEST PAIN [None]
  - CORONARY ARTERY DISEASE [None]
  - DILATATION VENTRICULAR [None]
  - DIZZINESS [None]
  - GASTROENTERITIS [None]
  - HAEMATOMA [None]
  - HAEMATURIA [None]
  - HYPERTENSION [None]
  - HYPERTENSIVE HEART DISEASE [None]
  - INTERVERTEBRAL DISC PROTRUSION [None]
  - POSTOPERATIVE ILEUS [None]
  - RENAL COLIC [None]
  - SYNCOPE VASOVAGAL [None]
  - URINARY TRACT INFECTION [None]
